FAERS Safety Report 10483304 (Version 1)
Quarter: 2014Q3

REPORT INFORMATION
  Report Type: Spontaneous
  Country: DE (occurrence: DE)
  Receive Date: 20140930
  Receipt Date: 20140930
  Transmission Date: 20150326
  Serious: Yes (Congenital Anomaly, Other)
  Sender: FDA-Public Use
  Company Number: DE-AUROBINDO-AUR-APL-2014-10168

PATIENT
  Age: 1 Day
  Sex: Male
  Weight: 2.41 kg

DRUGS (6)
  1. ASPIRIN. [Concomitant]
     Active Substance: ASPIRIN
     Indication: PROPHYLAXIS
  2. MIRTAZAPINE. [Suspect]
     Active Substance: MIRTAZAPINE
     Indication: DEPRESSION
     Route: 064
  3. TORASEMID [Suspect]
     Active Substance: TORSEMIDE
     Indication: HEART VALVE REPLACEMENT
     Dosage: 10 MG, ONCE A DAY
     Route: 064
  4. METHADONE [Suspect]
     Active Substance: METHADONE HYDROCHLORIDE
     Indication: DRUG WITHDRAWAL MAINTENANCE THERAPY
     Dosage: 35 MG, ONCE A DAY
     Route: 064
     Dates: start: 20130403, end: 20140117
  5. SPIROBETA [Suspect]
     Active Substance: SPIRONOLACTONE
     Indication: HEART VALVE REPLACEMENT
     Dosage: 50 MG, ONCE A DAY
     Route: 064
  6. ASPIRIN. [Concomitant]
     Active Substance: ASPIRIN
     Indication: HEART VALVE REPLACEMENT
     Dosage: 100 MG, ONCE A DAY
     Route: 064
     Dates: start: 20130403, end: 20140117

REACTIONS (8)
  - Atrial septal defect [Unknown]
  - Neonatal respiratory distress syndrome [Recovered/Resolved]
  - Patent ductus arteriosus [Recovering/Resolving]
  - Coarctation of the aorta [Recovering/Resolving]
  - Drug withdrawal syndrome neonatal [Recovered/Resolved]
  - Small for dates baby [Unknown]
  - Cardiac failure [Recovering/Resolving]
  - Foetal exposure during pregnancy [Unknown]

NARRATIVE: CASE EVENT DATE: 20140117
